FAERS Safety Report 6086348-6 (Version None)
Quarter: 2009Q1

REPORT INFORMATION
  Report Type: 
  Country: None (occurrence: None)
  Receive Date: 20090220
  Receipt Date: 20090127
  Transmission Date: 20090719
  Serious: Yes (Other)
  Sender: FDA-Public Use
  Company Number: US-PFIZER INC-2008022468

PATIENT
  Sex: Male
  Weight: 90.72 kg

DRUGS (6)
  1. CHANTIX [Suspect]
     Dosage: 1 MG, 2X/DAY
     Route: 048
     Dates: start: 20080207
  2. ALPRAZOLAM [Suspect]
     Dosage: 2 MG, 4X/DAY
  3. OXYCODONE [Concomitant]
  4. ACETYLSALICYLIC ACID SRT [Concomitant]
  5. REMERON [Concomitant]
     Indication: DEPRESSION
  6. AMBIEN [Concomitant]
     Indication: INSOMNIA

REACTIONS (10)
  - ANXIETY [None]
  - DRUG INEFFECTIVE [None]
  - DYSGEUSIA [None]
  - DYSPNOEA [None]
  - FATIGUE [None]
  - INCORRECT DOSE ADMINISTERED [None]
  - NAUSEA [None]
  - ORAL SURGERY [None]
  - PANIC ATTACK [None]
  - STRESS [None]
